FAERS Safety Report 18863848 (Version 1)
Quarter: 2021Q1

REPORT INFORMATION
  Report Type: Spontaneous
  Country: US (occurrence: US)
  Receive Date: 20210209
  Receipt Date: 20210209
  Transmission Date: 20210420
  Serious: No
  Sender: FDA-Public Use
  Company Number: US-TAKEDA-2021TUS007954

PATIENT

DRUGS (2)
  1. FIRAZYR [Suspect]
     Active Substance: ICATIBANT ACETATE
     Indication: HEREDITARY ANGIOEDEMA WITH C1 ESTERASE INHIBITOR DEFICIENCY
     Dosage: 30 MILLIGRAM
     Route: 058
     Dates: start: 20210205, end: 20210205
  2. FIRAZYR [Suspect]
     Active Substance: ICATIBANT ACETATE
     Indication: HEREDITARY ANGIOEDEMA WITH C1 ESTERASE INHIBITOR DEFICIENCY
     Dosage: 30 MILLIGRAM
     Route: 058
     Dates: start: 20210205, end: 20210205

REACTIONS (3)
  - Inappropriate schedule of product administration [Unknown]
  - Product availability issue [Unknown]
  - No adverse event [Unknown]
